FAERS Safety Report 6601709-1 (Version None)
Quarter: 2010Q1

REPORT INFORMATION
  Report Type: 
  Country: None (occurrence: None)
  Receive Date: 20100225
  Receipt Date: 20100217
  Transmission Date: 20100710
  Serious: Yes (Hospitalization)
  Sender: FDA-Public Use
  Company Number: US-GENENTECH-298396

PATIENT
  Sex: Male
  Weight: 79.365 kg

DRUGS (1)
  1. XOLAIR [Suspect]
     Indication: DRUG USE FOR UNKNOWN INDICATION
     Dosage: 150 MG, 1/MONTH
     Route: 058

REACTIONS (2)
  - CEREBROVASCULAR ACCIDENT [None]
  - PRESYNCOPE [None]
